FAERS Safety Report 8351543 (Version 8)
Quarter: 2018Q1

REPORT INFORMATION
  Report Type: Spontaneous
  Country: US (occurrence: US)
  Receive Date: 20120124
  Receipt Date: 20180108
  Transmission Date: 20180509
  Serious: Yes (Hospitalization, Disabling, Other)
  Sender: FDA-Public Use
  Company Number: US-009507513-1201USA02899

PATIENT
  Sex: Female
  Weight: 72.58 kg

DRUGS (5)
  1. FOSAMAX [Suspect]
     Active Substance: ALENDRONATE SODIUM
     Indication: OSTEOPENIA
  2. NEXIUM [Concomitant]
     Active Substance: ESOMEPRAZOLE MAGNESIUM
     Dosage: 40 MG, QD
     Route: 048
     Dates: start: 200203, end: 200610
  3. ALENDRONATE SODIUM. [Suspect]
     Active Substance: ALENDRONATE SODIUM
     Indication: OSTEOPOROSIS
     Dosage: 70 MG, QW
     Route: 048
     Dates: start: 20080401, end: 2009
  4. FOSAMAX PLUS D [Suspect]
     Active Substance: ALENDRONATE SODIUM\CHOLECALCIFEROL
     Indication: OSTEOPOROSIS
     Route: 048
     Dates: start: 20060730
  5. FOSAMAX [Suspect]
     Active Substance: ALENDRONATE SODIUM
     Indication: OSTEOPOROSIS
     Dosage: 70 MG, QW
     Route: 048
     Dates: start: 200606, end: 20090729

REACTIONS (54)
  - Restless legs syndrome [Unknown]
  - Hypogammaglobulinaemia [Unknown]
  - Atrophic vulvovaginitis [Unknown]
  - Balance disorder [Unknown]
  - Haemoglobin decreased [Unknown]
  - Anal sphincter atony [Unknown]
  - Type 2 diabetes mellitus [Unknown]
  - Peripheral swelling [Unknown]
  - Device failure [Unknown]
  - Hysterectomy [Unknown]
  - Salpingo-oophorectomy [Unknown]
  - Body height decreased [Unknown]
  - Exophthalmos [Not Recovered/Not Resolved]
  - Sinusitis [Unknown]
  - Rheumatoid arthritis [Unknown]
  - Osteomyelitis [Unknown]
  - Low turnover osteopathy [Not Recovered/Not Resolved]
  - Elbow operation [Unknown]
  - Haematocrit decreased [Unknown]
  - Femur fracture [Recovered/Resolved]
  - Plantar fasciitis [Unknown]
  - Urge incontinence [Unknown]
  - Cough [Unknown]
  - Uterovaginal prolapse [Unknown]
  - Vitamin B12 deficiency [Unknown]
  - Areflexia [Unknown]
  - Lower limb fracture [Unknown]
  - Tendon rupture [Unknown]
  - Bone metabolism disorder [Unknown]
  - Hypertension [Unknown]
  - Bronchitis [Unknown]
  - Neuropathy peripheral [Unknown]
  - Foot fracture [Unknown]
  - Connective tissue disorder [Unknown]
  - Arthritis [Unknown]
  - Burning sensation [Unknown]
  - Carpal tunnel decompression [Unknown]
  - Vitamin D deficiency [Unknown]
  - Hyperlipidaemia [Unknown]
  - Gastrointestinal disorder [Unknown]
  - Iron deficiency [Unknown]
  - Seroma [Unknown]
  - Hyperparathyroidism secondary [Unknown]
  - Goitre [Unknown]
  - Back pain [Unknown]
  - Hip fracture [Recovering/Resolving]
  - Femur fracture [Recovered/Resolved]
  - Rectocele [Unknown]
  - Pelvic prolapse [Unknown]
  - Depression [Not Recovered/Not Resolved]
  - Respiratory tract infection [Unknown]
  - Stress urinary incontinence [Unknown]
  - Blood phosphorus increased [Unknown]
  - Musculoskeletal pain [Unknown]

NARRATIVE: CASE EVENT DATE: 20060428
